FAERS Safety Report 6182079-2 (Version None)
Quarter: 2009Q2

REPORT INFORMATION
  Report Type: 
  Country: None (occurrence: None)
  Receive Date: 20090507
  Receipt Date: 20090429
  Transmission Date: 20091009
  Serious: Yes (Other)
  Sender: FDA-Public Use
  Company Number: GB-PFIZER INC-2009205127

PATIENT

DRUGS (3)
  1. LIPITOR [Suspect]
     Dosage: 20 MG, 1X/DAY
  2. INSULIN [Concomitant]
     Indication: DIABETES MELLITUS
  3. LEVOTHYROXINE SODIUM [Concomitant]
     Dosage: 125 UG, UNK

REACTIONS (3)
  - ARTERIAL OCCLUSIVE DISEASE [None]
  - BLOOD GLUCOSE FLUCTUATION [None]
  - WEIGHT DECREASED [None]
